FAERS Safety Report 26144560 (Version 1)
Quarter: 2025Q4

REPORT INFORMATION
  Report Type: Spontaneous
  Country: US (occurrence: None)
  Receive Date: 20251211
  Receipt Date: 20251211
  Transmission Date: 20260117
  Serious: No
  Sender: FDA-CTU
  Company Number: None

PATIENT
  Age: 84 Year
  Sex: Male
  Weight: 96 kg

DRUGS (1)
  1. ABIRATERONE ACETATE [Suspect]
     Active Substance: ABIRATERONE ACETATE
     Dosage: 1000 MG  AM PO
     Route: 048
     Dates: start: 20250516, end: 20251025

REACTIONS (4)
  - Rhabdomyolysis [None]
  - Acute kidney injury [None]
  - Liver function test increased [None]
  - Blood creatinine increased [None]

NARRATIVE: CASE EVENT DATE: 20251025
